FAERS Safety Report 19501307 (Version 2)
Quarter: 2021Q3

REPORT INFORMATION
  Report Type: Spontaneous
  Country: US (occurrence: US)
  Receive Date: 20210707
  Receipt Date: 20210716
  Transmission Date: 20211014
  Serious: No
  Sender: FDA-Public Use
  Company Number: US-LUPIN PHARMACEUTICALS INC.-2021-10743

PATIENT
  Sex: Female

DRUGS (1)
  1. TRI?LO?MARZIA [Suspect]
     Active Substance: ETHINYL ESTRADIOL\NORGESTIMATE
     Indication: CONTRACEPTION
     Dosage: UNK
     Route: 065

REACTIONS (4)
  - No adverse event [Unknown]
  - Product temperature excursion issue [Unknown]
  - Poor quality product administered [Unknown]
  - Recalled product administered [Unknown]
